FAERS Safety Report 6216233-8 (Version None)
Quarter: 2009Q2

REPORT INFORMATION
  Report Type: 
  Country: None (occurrence: None)
  Receive Date: 20090605
  Receipt Date: 20090528
  Transmission Date: 20091009
  Serious: Yes (Hospitalization)
  Sender: FDA-Public Use
  Company Number: A0788672A

PATIENT
  Age: 9 Month

DRUGS (1)
  1. VENTOLIN [Suspect]
     Route: 048
     Dates: start: 20090525, end: 20090525

REACTIONS (1)
  - ACCIDENTAL EXPOSURE [None]
